FAERS Safety Report 5251402-5 (Version None)
Quarter: 2007Q1

REPORT INFORMATION
  Report Type: 
  Country: None (occurrence: None)
  Receive Date: 20070228
  Receipt Date: 20060505
  Transmission Date: 20070707
  Serious: No
  Sender: FDA-Public Use
  Company Number: US-GLAXOSMITHKLINE-A0604485A

PATIENT
  Age: 41 Year
  Sex: Female

DRUGS (3)
  1. LAMICTAL [Suspect]
     Indication: DEPRESSION
     Dosage: 100MG PER DAY
     Route: 048
     Dates: start: 20060301
  2. TOPAMAX [Concomitant]
  3. MICROGESTIN FE 1/20 [Concomitant]

REACTIONS (3)
  - HEAT RASH [None]
  - RASH ERYTHEMATOUS [None]
  - RASH PRURITIC [None]
